FAERS Safety Report 7963617-3 (Version None)
Quarter: 2011Q4

REPORT INFORMATION
  Report Type: 
  Country: None (occurrence: None)
  Receive Date: 20111208
  Receipt Date: 20111109
  Transmission Date: 20120403
  Serious: No
  Sender: FDA-Public Use
  Company Number: US-BAYER-2011-109726

PATIENT
  Age: 37 Year
  Sex: Male
  Weight: 75 kg

DRUGS (1)
  1. ALEVE (CAPLET) [Suspect]
     Indication: HEADACHE
     Dosage: 2 TAB USED ONLY ONE TIME
     Route: 048
     Dates: start: 20111109

REACTIONS (3)
  - URTICARIA [None]
  - PRURITUS GENERALISED [None]
  - ORAL PRURITUS [None]
